FAERS Safety Report 18538418 (Version 1)
Quarter: 2020Q4

REPORT INFORMATION
  Report Type: Other
  Country: BR (occurrence: BR)
  Receive Date: 20201124
  Receipt Date: 20201124
  Transmission Date: 20210114
  Serious: Yes (Death, Life-Threatening, Hospitalization, Other)
  Sender: FDA-Public Use
  Company Number: BR-INNOGENIX, LLC-2096229

PATIENT
  Age: 9 Year
  Sex: Female

DRUGS (4)
  1. CLONAZEPM [Suspect]
     Active Substance: CLONAZEPAM
     Route: 048
  2. HALOPERIDOL. [Suspect]
     Active Substance: HALOPERIDOL
     Indication: PRODUCT USED FOR UNKNOWN INDICATION
     Route: 048
  3. VALPROIC ACID. [Suspect]
     Active Substance: VALPROIC ACID
     Route: 048
  4. PROMETHAZINE [Suspect]
     Active Substance: PROMETHAZINE HYDROCHLORIDE
     Route: 048

REACTIONS (10)
  - Hypothermia [Fatal]
  - Hypoglycaemia [Fatal]
  - Electrocardiogram QT prolonged [Fatal]
  - Depressed level of consciousness [Fatal]
  - Epistaxis [Fatal]
  - Bradycardia [Fatal]
  - Accidental overdose [Fatal]
  - Shock [Fatal]
  - Brain death [Fatal]
  - Acute kidney injury [Fatal]
